FAERS Safety Report 6472269-3 (Version None)
Quarter: 2009Q4

REPORT INFORMATION
  Report Type: 
  Country: None (occurrence: None)
  Receive Date: 20091203
  Receipt Date: 20091125
  Transmission Date: 20100525
  Serious: Yes (Hospitalization)
  Sender: FDA-Public Use
  Company Number: US-GENENTECH-295007

PATIENT
  Sex: Female
  Weight: 49.433 kg

DRUGS (4)
  1. BEVACIZUMAB [Suspect]
     Indication: GLIOBLASTOMA MULTIFORME
     Dosage: 454 MG, UNK
     Route: 042
     Dates: start: 20090812, end: 20090923
  2. BEVACIZUMAB [Suspect]
     Dosage: 492 MG, UNK
     Dates: start: 20091103
  3. TEMODAR [Concomitant]
     Indication: GLIOBLASTOMA MULTIFORME
     Dosage: 115 MG, UNK
     Dates: start: 20090812, end: 20090923
  4. EVEROLIMUS [Concomitant]
     Indication: GLIOBLASTOMA MULTIFORME
     Dosage: 10 MG, QD
     Route: 048
     Dates: start: 20091103

REACTIONS (1)
  - INTERSTITIAL LUNG DISEASE [None]
